FAERS Safety Report 6656648-7 (Version None)
Quarter: 2010Q1

REPORT INFORMATION
  Report Type: 
  Country: None (occurrence: None)
  Receive Date: 20100329
  Receipt Date: 20090610
  Transmission Date: 20100710
  Serious: Yes (Other)
  Sender: FDA-Public Use
  Company Number: US-GENENTECH-278456

PATIENT
  Sex: Male
  Weight: 54.422 kg

DRUGS (7)
  1. XOLAIR [Suspect]
     Indication: ASTHMA
     Dosage: 150 MG, Q4W
     Dates: start: 20080930
  2. ADVAIR DISKUS 100/50 [Concomitant]
     Indication: ASTHMA
     Dosage: 1 PUFF, QD
     Route: 055
     Dates: start: 20041001
  3. QVAR 40 [Concomitant]
     Indication: ASTHMA
     Dosage: 80 A?G, QD
     Route: 055
     Dates: start: 20060101
  4. SINGULAIR [Concomitant]
     Indication: ASTHMA
     Dosage: 10 MG, QD
     Route: 048
     Dates: start: 20060101
  5. ALBUTEROL [Concomitant]
     Indication: ASTHMA
     Dosage: 2 PUFF, PRN
     Dates: start: 20041001
  6. XOPENEX [Concomitant]
     Indication: ASTHMA
     Dosage: 1 PUFF, Q12H
     Route: 055
     Dates: start: 20060101
  7. ASMANEX TWISTHALER [Concomitant]
     Indication: ASTHMA
     Dosage: 220 A?G, QD
     Route: 055
     Dates: start: 20060101

REACTIONS (2)
  - DYSPNOEA [None]
  - FLUSHING [None]
